FAERS Safety Report 10447703 (Version 3)
Quarter: 2014Q4

REPORT INFORMATION
  Report Type: Spontaneous
  Country: NO (occurrence: NO)
  Receive Date: 20140911
  Receipt Date: 20141120
  Transmission Date: 20150528
  Serious: Yes (Other)
  Sender: FDA-Public Use
  Company Number: NO-PFIZER INC-2014249568

PATIENT
  Age: 58 Year
  Sex: Male

DRUGS (5)
  1. TRAMADOL HCL [Interacting]
     Active Substance: TRAMADOL HYDROCHLORIDE
     Indication: MUSCULOSKELETAL PAIN
     Dosage: 50 MG, 3X/DAY
     Route: 048
     Dates: start: 201111, end: 201207
  2. NEURONTIN [Suspect]
     Active Substance: GABAPENTIN
     Indication: MUSCULOSKELETAL PAIN
     Dosage: 400 MG, 3X/DAY
     Route: 048
     Dates: start: 201111, end: 201204
  3. NEURONTIN [Interacting]
     Active Substance: GABAPENTIN
     Dosage: 800 MG, 3X/DAY
     Route: 048
     Dates: start: 201204, end: 201208
  4. STESOLID [Concomitant]
     Active Substance: DIAZEPAM
     Indication: ANTISOCIAL BEHAVIOUR
     Dosage: 5 MG, 3X/DAY; MIGHT HAVE BEEN OVERDOSED
     Route: 048
     Dates: start: 20120710, end: 20120713
  5. NEBIDO [Concomitant]
     Active Substance: TESTOSTERONE UNDECANOATE
     Indication: ANXIETY
     Dosage: UNK
     Route: 030
     Dates: start: 2009, end: 201309

REACTIONS (12)
  - Drug withdrawal syndrome [Unknown]
  - Hallucination [Recovered/Resolved]
  - Hostility [Recovered/Resolved]
  - Mood altered [Recovered/Resolved]
  - Suspiciousness [Recovered/Resolved]
  - Paraesthesia [Recovered/Resolved]
  - Drug dependence [Unknown]
  - Loss of consciousness [Recovered/Resolved]
  - Drug interaction [Recovered/Resolved]
  - Product use issue [Unknown]
  - Sweat gland disorder [Recovered/Resolved]
  - Psychotic behaviour [Recovered/Resolved]

NARRATIVE: CASE EVENT DATE: 201111
